FAERS Safety Report 13053115 (Version 1)
Quarter: 2016Q4

REPORT INFORMATION
  Report Type: Other
  Country: FR (occurrence: FR)
  Receive Date: 20161222
  Receipt Date: 20161222
  Transmission Date: 20170207
  Serious: Yes (Other)
  Sender: FDA-Public Use
  Company Number: FR-AJANTA PHARMA USA INC.-1061150

PATIENT
  Age: 25 Year
  Sex: Male

DRUGS (11)
  1. THIOPENTAL SODIUM. [Concomitant]
     Active Substance: THIOPENTAL SODIUM
  2. SUFENTANIL CITRATE. [Concomitant]
     Active Substance: SUFENTANIL CITRATE
  3. ESOMEPRAZOLE SODIUM. [Concomitant]
     Active Substance: ESOMEPRAZOLE SODIUM
  4. ENOXAPARIN SODIUM. [Concomitant]
     Active Substance: ENOXAPARIN SODIUM
  5. CLONAZEPAM. [Concomitant]
     Active Substance: CLONAZEPAM
  6. FOSPHENYTOIN [Concomitant]
     Active Substance: FOSPHENYTOIN\FOSPHENYTOIN SODIUM
  7. LEVETIRACETAM. [Suspect]
     Active Substance: LEVETIRACETAM
     Indication: EPILEPSY
  8. CLOBAZAM [Concomitant]
     Active Substance: CLOBAZAM
  9. PROPOFOL. [Concomitant]
     Active Substance: PROPOFOL
  10. CRYSTALLOID FLUID [Concomitant]
  11. SUXAMETHONIUM [Concomitant]
     Active Substance: SUCCINYLCHOLINE

REACTIONS (1)
  - Blood creatine phosphokinase increased [Recovered/Resolved]

NARRATIVE: CASE EVENT DATE: 20160510
